FAERS Safety Report 9720782 (Version 3)
Quarter: 2014Q1

REPORT INFORMATION
  Report Type: Spontaneous
  Country: DE (occurrence: DE)
  Receive Date: 20131129
  Receipt Date: 20140326
  Transmission Date: 20141002
  Serious: No
  Sender: FDA-Public Use
  Company Number: DE-JNJFOC-20131109082

PATIENT
  Age: 61 Year
  Sex: Female

DRUGS (2)
  1. XEPLION [Suspect]
     Indication: DELUSION
     Route: 030
     Dates: start: 20130911
  2. XEPLION [Suspect]
     Indication: DELUSION
     Route: 030
     Dates: end: 20131023

REACTIONS (3)
  - Akathisia [Recovered/Resolved]
  - Electrocardiogram change [Recovered/Resolved]
  - Drug level increased [Recovered/Resolved]
